FAERS Safety Report 12683801 (Version 1)
Quarter: 2016Q3

REPORT INFORMATION
  Report Type: Spontaneous
  Country: US (occurrence: US)
  Receive Date: 20160825
  Receipt Date: 20160825
  Transmission Date: 20161109
  Serious: Yes (Other)
  Sender: FDA-Public Use
  Company Number: US-009507513-1608USA009914

PATIENT
  Sex: Female

DRUGS (1)
  1. IVERMECTIN. [Suspect]
     Active Substance: IVERMECTIN
     Indication: INFECTION PARASITIC
     Dosage: UNK

REACTIONS (4)
  - Immune system disorder [Not Recovered/Not Resolved]
  - Hypersensitivity [Not Recovered/Not Resolved]
  - Erythromelalgia [Not Recovered/Not Resolved]
  - Infection [Not Recovered/Not Resolved]
